FAERS Safety Report 21545961 (Version 1)
Quarter: 2022Q4

REPORT INFORMATION
  Report Type: Other
  Country: CA (occurrence: CA)
  Receive Date: 20221103
  Receipt Date: 20221103
  Transmission Date: 20230113
  Serious: Yes (Other)
  Sender: FDA-Public Use
  Company Number: CA-CELLTRION INC.-2022CA017813

PATIENT

DRUGS (18)
  1. RITUXIMAB [Suspect]
     Active Substance: RITUXIMAB
     Indication: Rheumatoid arthritis
     Dosage: 1000 MILLIGRAM
     Route: 042
  2. RITUXIMAB [Suspect]
     Active Substance: RITUXIMAB
     Dosage: 1000 MILLIGRAM
     Route: 042
  3. ACTEMRA [Suspect]
     Active Substance: TOCILIZUMAB
     Indication: Rheumatoid arthritis
     Dosage: 409.6 MILLIGRAM, 1 EVERY 4 WEEKS
     Route: 042
  4. ACTEMRA [Suspect]
     Active Substance: TOCILIZUMAB
     Dosage: 415 MILLIGRAM, 1 EVERY 4 WEEKS
     Route: 042
  5. ACTEMRA [Suspect]
     Active Substance: TOCILIZUMAB
     Dosage: 406 MILLIGRAM, 1 EVERY 4 WEEKS
     Route: 042
  6. ACTEMRA [Suspect]
     Active Substance: TOCILIZUMAB
     Indication: Rheumatoid arthritis
     Dosage: 401.6 MILLIGRAM, 1 EVERY 4 WEEKS
     Route: 042
  7. ESTROGEL [Suspect]
     Active Substance: ESTRADIOL
     Indication: Hormone replacement therapy
     Dosage: METERED-DOSE PUMP
     Route: 061
  8. ESTROGEL [Suspect]
     Active Substance: ESTRADIOL
     Indication: Hormone replacement therapy
     Dosage: METERE-DOSE PUMP
     Route: 061
  9. PROMETRIUM [Suspect]
     Active Substance: PROGESTERONE
     Indication: Hormone replacement therapy
     Route: 048
  10. PROMETRIUM [Suspect]
     Active Substance: PROGESTERONE
     Indication: Hormone replacement therapy
     Route: 048
  11. ACETAMINOPHEN [Concomitant]
     Active Substance: ACETAMINOPHEN
     Indication: Premedication
     Dosage: 325 MILLIGRAM
     Route: 048
  12. CELEBREX [Concomitant]
     Active Substance: CELECOXIB
  13. DIPHENHYDRAMINE HYDROCHLORIDE [Concomitant]
     Active Substance: DIPHENHYDRAMINE HYDROCHLORIDE
     Indication: Premedication
     Dosage: 50 MILLIGRAM
     Route: 048
  14. ESOMEPRAZOLE [Concomitant]
     Active Substance: ESOMEPRAZOLE
     Route: 065
  15. FOLIC ACID [Concomitant]
     Active Substance: FOLIC ACID
  16. METHOTREXATE [Concomitant]
     Active Substance: METHOTREXATE
     Route: 048
  17. METHYLPREDNISOLONE [Concomitant]
     Active Substance: METHYLPREDNISOLONE
     Indication: Premedication
     Dosage: 100 MILLIGRAM
     Route: 042
  18. PREDNISONE [Concomitant]
     Active Substance: PREDNISONE

REACTIONS (11)
  - Dislocation of vertebra [Recovered/Resolved]
  - Drug interaction [Recovered/Resolved]
  - Foot fracture [Recovered/Resolved]
  - Ill-defined disorder [Recovered/Resolved]
  - Muscular weakness [Recovered/Resolved]
  - Rheumatoid arthritis [Recovered/Resolved]
  - Road traffic accident [Recovered/Resolved]
  - Hot flush [Recovered/Resolved]
  - Kidney infection [Recovered/Resolved]
  - Urticaria [Recovered/Resolved]
  - Drug ineffective [Recovered/Resolved]
